FAERS Safety Report 22674197 (Version 2)
Quarter: 2023Q4

REPORT INFORMATION
  Report Type: Report from Study
  Country: DE (occurrence: DE)
  Receive Date: 20230705
  Receipt Date: 20231220
  Transmission Date: 20240110
  Serious: Yes (Other)
  Sender: FDA-Public Use
  Company Number: DE-PFIZER INC-202300239456

PATIENT
  Age: 84 Year
  Sex: Male

DRUGS (7)
  1. IDARUBICIN HYDROCHLORIDE [Suspect]
     Active Substance: IDARUBICIN HYDROCHLORIDE
     Indication: Angioimmunoblastic T-cell lymphoma
     Dosage: 10 MG, CYCLIC
     Route: 048
  2. PREDNISOLONE [Suspect]
     Active Substance: PREDNISOLONE
     Indication: Angioimmunoblastic T-cell lymphoma
     Dosage: 100 MG, CYCLIC (1-0-0)
     Route: 048
  3. TROFOSFAMIDE [Suspect]
     Active Substance: TROFOSFAMIDE
     Indication: Angioimmunoblastic T-cell lymphoma
     Dosage: 50 MG, CYCLIC (1-1-1, ABS. 150 MG)
     Route: 048
  4. ETOPOSIDE [Suspect]
     Active Substance: ETOPOSIDE
     Indication: Angioimmunoblastic T-cell lymphoma
     Dosage: 50 MG, CYCLIC (1-0-0)
     Route: 048
  5. PROCARBAZINE [Suspect]
     Active Substance: PROCARBAZINE
     Indication: Angioimmunoblastic T-cell lymphoma
     Dosage: 100 MG, CYCLIC (1-0-0)
     Route: 048
  6. SULFAMETHOXAZOLE\TRIMETHOPRIM [Concomitant]
     Active Substance: SULFAMETHOXAZOLE\TRIMETHOPRIM
     Indication: Infection prophylaxis
     Dosage: UNK
  7. ACYCLOVIR [Concomitant]
     Active Substance: ACYCLOVIR
     Indication: Infection prophylaxis
     Dosage: UNK

REACTIONS (2)
  - Urinary tract infection [Recovering/Resolving]
  - Blood creatinine increased [Recovering/Resolving]
